FAERS Safety Report 7313984-9 (Version None)
Quarter: 2011Q1

REPORT INFORMATION
  Report Type: 
  Country: None (occurrence: None)
  Receive Date: 20110225
  Receipt Date: 20110216
  Transmission Date: 20110831
  Serious: Yes (Hospitalization)
  Sender: FDA-Public Use
  Company Number: PHHY2011JP13047

PATIENT
  Sex: Female

DRUGS (6)
  1. TEGRETOL [Suspect]
     Indication: TEMPORAL LOBE EPILEPSY
  2. VALPROATE SODIUM [Suspect]
     Indication: TEMPORAL LOBE EPILEPSY
  3. GABAPENTIN [Concomitant]
     Indication: TEMPORAL LOBE EPILEPSY
  4. TOPIRAMATE [Concomitant]
     Indication: TEMPORAL LOBE EPILEPSY
  5. CLOBAZAM [Concomitant]
     Indication: TEMPORAL LOBE EPILEPSY
  6. LAMOTRIGINE [Concomitant]
     Indication: TEMPORAL LOBE EPILEPSY
     Dosage: 12.5MG, 100MG

REACTIONS (3)
  - NAUSEA [None]
  - COGNITIVE DISORDER [None]
  - DECREASED APPETITE [None]
